FAERS Safety Report 8830561 (Version 1)
Quarter: 2012Q4

REPORT INFORMATION
  Report Type: 
  Country: DK (occurrence: DK)
  Receive Date: 20121009
  Receipt Date: 20121009
  Transmission Date: 20130627
  Serious: Yes (Death)
  Sender: FDA-Public Use
  Company Number: DK-ELI_LILLY_AND_COMPANY-DK201209007897

PATIENT
  Age: 33 Year
  Sex: Male

DRUGS (5)
  1. ZYPREXA [Suspect]
     Indication: SCHIZOPHRENIA
  2. LEPONEX [Concomitant]
     Indication: SCHIZOPHRENIA
  3. SERENASE                           /00027401/ [Concomitant]
     Indication: SCHIZOPHRENIA
  4. NOZINAN [Concomitant]
     Indication: SCHIZOPHRENIA
  5. ANTIDEPRESSANTS [Concomitant]

REACTIONS (3)
  - Death [Fatal]
  - Anxiety [Unknown]
  - Obsessive thoughts [Unknown]
